FAERS Safety Report 17971188 (Version 3)
Quarter: 2020Q3

REPORT INFORMATION
  Report Type: Spontaneous
  Country: CA (occurrence: CA)
  Receive Date: 20200702
  Receipt Date: 20200824
  Transmission Date: 20201103
  Serious: Yes (Other)
  Sender: FDA-Public Use
  Company Number: CA-CELLTRION INC.-2020CA017915

PATIENT

DRUGS (7)
  1. INFLECTRA [Suspect]
     Active Substance: INFLIXIMAB-DYYB
     Indication: COLITIS
     Dosage: 5 MG/KG, AT WEEK 0 AND POSSIBLY WEEK 2
     Route: 042
     Dates: start: 20200118
  2. INFLECTRA [Suspect]
     Active Substance: INFLIXIMAB-DYYB
     Dosage: 5 MG/KG, AT WEEK 0 AND POSSIBLY WEEK 2
     Route: 042
     Dates: start: 20200130, end: 20200130
  3. INFLECTRA [Suspect]
     Active Substance: INFLIXIMAB-DYYB
     Indication: COLITIS ULCERATIVE
     Dosage: 5 MG/KG, AT WEEK 0 AND POSSIBLY WEEK 2
     Route: 042
     Dates: start: 20200118
  4. PREDNISONE. [Concomitant]
     Active Substance: PREDNISONE
     Dosage: 100 MG
     Dates: start: 202001, end: 2020
  5. PREDNISONE. [Concomitant]
     Active Substance: PREDNISONE
     Dosage: 100 MG
     Dates: start: 202002
  6. INFLECTRA [Suspect]
     Active Substance: INFLIXIMAB-DYYB
     Dosage: 400 MG, (EVERY 0,2,6 THEN EVERY 8 WEEKS)
     Route: 042
     Dates: start: 20200703
  7. INFLECTRA [Suspect]
     Active Substance: INFLIXIMAB-DYYB
     Dosage: 400 MG, (EVERY 0,2,6 THEN EVERY 8 WEEKS)
     Route: 042
     Dates: start: 20200603

REACTIONS (4)
  - Pyrexia [Recovered/Resolved]
  - Colitis ulcerative [Unknown]
  - Tremor [Recovered/Resolved]
  - Muscular weakness [Recovered/Resolved]

NARRATIVE: CASE EVENT DATE: 2020
